FAERS Safety Report 24847904 (Version 2)
Quarter: 2025Q3

REPORT INFORMATION
  Report Type: Report from Study
  Country: US (occurrence: US)
  Receive Date: 20250116
  Receipt Date: 20250810
  Transmission Date: 20251020
  Serious: Yes (Hospitalization, Other)
  Sender: ALEXION PHARMACEUTICALS
  Company Number: US-AstraZeneca-CH-00782822A

PATIENT
  Age: 50 Year
  Sex: Male

DRUGS (2)
  1. DAPAGLIFLOZIN [Suspect]
     Active Substance: DAPAGLIFLOZIN
     Route: 065
  2. BUDESONIDE\FORMOTEROL\GLYCOPYRRONIUM [Suspect]
     Active Substance: BUDESONIDE\FORMOTEROL\GLYCOPYRRONIUM
     Route: 065

REACTIONS (14)
  - Road traffic accident [Unknown]
  - Injury [Unknown]
  - General physical health deterioration [Unknown]
  - Rib fracture [Unknown]
  - Pain [Unknown]
  - Malnutrition [Unknown]
  - Acute kidney injury [Unknown]
  - Skin laceration [Unknown]
  - Acute respiratory failure [Unknown]
  - Cardiac failure [Unknown]
  - Hypophagia [Unknown]
  - Anxiety [Unknown]
  - Depression [Unknown]
  - Chronic obstructive pulmonary disease [Unknown]

NARRATIVE: CASE EVENT DATE: 20241211
